FAERS Safety Report 7912901-8 (Version None)
Quarter: 2011Q4

REPORT INFORMATION
  Report Type: 
  Country: None (occurrence: None)
  Receive Date: 20111114
  Receipt Date: 20111031
  Transmission Date: 20120403
  Serious: Yes (Hospitalization)
  Sender: FDA-Public Use
  Company Number: JP-PFIZER INC-2011267677

PATIENT
  Age: 65 Year
  Sex: Male
  Weight: 54.8 kg

DRUGS (21)
  1. PROTECADIN [Suspect]
     Indication: GASTRIC MUCOSAL LESION
     Dosage: 10 MG, 2X/DAY
     Route: 048
  2. OMEPRAZOLE [Suspect]
     Indication: GASTRIC MUCOSAL LESION
     Dosage: 20 MG, 1X/DAY
     Route: 048
     Dates: start: 20110403, end: 20110912
  3. CYTARABINE [Suspect]
     Indication: ADULT T-CELL LYMPHOMA/LEUKAEMIA
     Dosage: 40 MG, UNK
     Route: 037
     Dates: start: 20110308, end: 20110523
  4. KETOPROFEN [Suspect]
     Indication: BACK PAIN
     Dosage: 40 MG, UNK
     Route: 061
  5. LAC-B [Suspect]
     Indication: CARDIOTOXICITY
     Dosage: 1 G, 3X/DAY
     Route: 048
     Dates: start: 20110702, end: 20111001
  6. CARBOPLATIN [Suspect]
     Indication: ADULT T-CELL LYMPHOMA/LEUKAEMIA
     Dosage: 250 MG/M2, 1/4 WEEK
     Route: 041
     Dates: start: 20110216, end: 20110716
  7. NEUQUINON [Suspect]
     Indication: CARDIOTOXICITY
     Dosage: 10 MG, 3X/DAY
     Route: 048
     Dates: start: 20110702, end: 20110902
  8. SULFAMETHOXAZOLE AND TRIMETHOPRIM [Suspect]
     Indication: PNEUMOCYSTIS JIROVECI PNEUMONIA
     Dosage: 1 G, 1X/DAY
     Route: 048
     Dates: start: 20110131
  9. METHOTREXATE SODIUM [Suspect]
     Indication: ADULT T-CELL LYMPHOMA/LEUKAEMIA
     Dosage: 15 MG, 1/8 WEEK
     Route: 037
     Dates: start: 20110308, end: 20110523
  10. ONCOVIN [Suspect]
     Indication: ADULT T-CELL LYMPHOMA/LEUKAEMIA
     Dosage: 1 MG/M2, 1/4 WEEK
     Route: 041
     Dates: start: 20110131, end: 20110702
  11. PREDNISOLONE [Suspect]
     Dosage: 10 MG, 1/8 WEEK
     Route: 037
     Dates: start: 20110308
  12. FILDESIN [Suspect]
     Indication: ADULT T-CELL LYMPHOMA/LEUKAEMIA
     Dosage: 2.4 MG/M2, 1/4 WEEK
     Route: 041
     Dates: start: 20110216, end: 20110716
  13. LOXONIN [Suspect]
     Indication: BACK PAIN
     Dosage: 60 MG, UNK
     Route: 048
  14. DOXORUBICIN HYDROCHLORIDE [Suspect]
     Indication: ADULT T-CELL LYMPHOMA/LEUKAEMIA
     Dosage: 40 MG/M2, 1/4 WEEKS
     Route: 041
     Dates: start: 20110131, end: 20110701
  15. DIFLUCAN [Suspect]
     Indication: INFECTION PROPHYLAXIS
     Dosage: 200 MG, 1X/DAY
     Route: 048
     Dates: start: 20110501, end: 20111001
  16. CYMERIN [Suspect]
     Indication: ADULT T-CELL LYMPHOMA/LEUKAEMIA
     Dosage: 60 MG/M2, 1/4 WEEK
     Route: 041
     Dates: start: 20110207, end: 20110701
  17. ISONIAZID [Suspect]
     Indication: ANTIBIOTIC PROPHYLAXIS
     Dosage: 300 MG, 1X/DAY
     Route: 048
     Dates: start: 20110131
  18. CYCLOPHOSPHAMIDE [Suspect]
     Indication: ADULT T-CELL LYMPHOMA/LEUKAEMIA
     Dosage: 350 MG/M2, 1/4 WEEK
     Route: 041
     Dates: start: 20110131, end: 20110702
  19. PREDNISOLONE [Suspect]
     Indication: ADULT T-CELL LYMPHOMA/LEUKAEMIA
     Dosage: 40 MG/M2, 1/4 WEEK
     Route: 048
     Dates: start: 20110131, end: 20110718
  20. ETOPOSIDE [Suspect]
     Indication: ADULT T-CELL LYMPHOMA/LEUKAEMIA
     Dosage: 100 MG/M2, 1/4 WEEK
     Route: 041
     Dates: start: 20110216, end: 20110718
  21. ALLOPURINOL [Suspect]
     Indication: TUMOUR LYSIS SYNDROME
     Dosage: 100 MG, 3X/DAY
     Route: 048
     Dates: start: 20110206, end: 20111001

REACTIONS (3)
  - REFRACTORY CYTOPENIA WITH MULTILINEAGE DYSPLASIA [None]
  - NEOPLASM MALIGNANT [None]
  - MYELODYSPLASTIC SYNDROME [None]
